FAERS Safety Report 19431652 (Version 5)
Quarter: 2021Q3

REPORT INFORMATION
  Report Type: Spontaneous
  Country: FI (occurrence: FI)
  Receive Date: 20210617
  Receipt Date: 20210727
  Transmission Date: 20211014
  Serious: Yes (Other)
  Sender: FDA-Public Use
  Company Number: FI-GLAXOSMITHKLINE-FI2021128046

PATIENT
  Sex: Female

DRUGS (1)
  1. FLIXONASE [Suspect]
     Active Substance: FLUTICASONE PROPIONATE
     Indication: PRODUCT USED FOR UNKNOWN INDICATION
     Dosage: UNK UNK, BID, 400 MCG, 1MG/ML, ONE PIPETTE DOSE INTO BOTH NOSTRILS TWICE A DAY
     Route: 045

REACTIONS (5)
  - Laryngeal pain [Unknown]
  - Accidental overdose [Unknown]
  - Chemical burn of respiratory tract [Unknown]
  - Speech disorder [Unknown]
  - Product complaint [Unknown]
